FAERS Safety Report 11456594 (Version 1)
Quarter: 2015Q3

REPORT INFORMATION
  Report Type: Spontaneous
  Country: JP (occurrence: JP)
  Receive Date: 20150903
  Receipt Date: 20150903
  Transmission Date: 20151125
  Serious: Yes (Hospitalization)
  Sender: FDA-Public Use
  Company Number: JP-SPECTRUM PHARMACEUTICALS, INC.-15-Z-JP-00372

PATIENT
  Age: 65 Year
  Sex: Male
  Weight: 71.5 kg

DRUGS (3)
  1. ZEVALIN [Suspect]
     Active Substance: IBRITUMOMAB TIUXETAN
     Dosage: UNK, UNKNOWN, SINGLE
     Route: 042
     Dates: start: 20131029, end: 20131029
  2. ZEVALIN [Suspect]
     Active Substance: IBRITUMOMAB TIUXETAN
     Indication: EXTRANODAL MARGINAL ZONE B-CELL LYMPHOMA (MALT TYPE)
     Dosage: UNK, UNKNOWN, SINGLE
     Route: 042
     Dates: start: 2013, end: 2013
  3. RITUXIMAB [Suspect]
     Active Substance: RITUXIMAB
     Indication: EXTRANODAL MARGINAL ZONE B-CELL LYMPHOMA (MALT TYPE)
     Dosage: UNK, UNKNOWN
     Route: 065

REACTIONS (1)
  - Carcinoma in situ of skin [Unknown]

NARRATIVE: CASE EVENT DATE: 20150616
